FAERS Safety Report 11788963 (Version 19)
Quarter: 2018Q3

REPORT INFORMATION
  Report Type: Report from Study
  Country: CA (occurrence: CA)
  Receive Date: 20151201
  Receipt Date: 20180904
  Transmission Date: 20181010
  Serious: Yes (Other)
  Sender: FDA-Public Use
  Company Number: PHHY2015CA151030

PATIENT
  Age: 61 Year
  Sex: Female

DRUGS (4)
  1. SANDOSTATIN [Suspect]
     Active Substance: OCTREOTIDE ACETATE
     Dosage: 50 UG, UNK
     Route: 058
     Dates: start: 20151211
  2. SANDOSTATIN [Suspect]
     Active Substance: OCTREOTIDE ACETATE
     Indication: CARCINOID TUMOUR
     Dosage: 50 UG, UNK
     Route: 058
     Dates: start: 20151112, end: 20151112
  3. SANDOSTATIN LAR DEPOT [Suspect]
     Active Substance: OCTREOTIDE ACETATE
     Dosage: 30 MG, Q3W (EVERY 3WEEKS)
     Route: 030
  4. SANDOSTATIN LAR DEPOT [Suspect]
     Active Substance: OCTREOTIDE ACETATE
     Indication: CARCINOID TUMOUR
     Dosage: 30 MG, QMO (EVERY 4 WEEKS)
     Route: 030
     Dates: start: 20151201

REACTIONS (31)
  - Eye pain [Unknown]
  - Dry mouth [Unknown]
  - Dental caries [Unknown]
  - Tooth fracture [Unknown]
  - Asthenopia [Unknown]
  - Fatigue [Unknown]
  - Hair growth abnormal [Unknown]
  - Swelling [Unknown]
  - Back pain [Unknown]
  - Abdominal distension [Unknown]
  - Nervousness [Unknown]
  - Dry eye [Unknown]
  - Inappropriate schedule of drug administration [Unknown]
  - Headache [Unknown]
  - Diarrhoea [Unknown]
  - Clavicle fracture [Unknown]
  - Humerus fracture [Recovering/Resolving]
  - Tongue disorder [Unknown]
  - Tongue biting [Unknown]
  - Malignant neoplasm progression [Unknown]
  - Arthralgia [Unknown]
  - Musculoskeletal pain [Unknown]
  - Malaise [Unknown]
  - Swollen tongue [Unknown]
  - Blood pressure increased [Unknown]
  - Blood pressure systolic increased [Unknown]
  - Pulmonary mass [Unknown]
  - Fall [Unknown]
  - Influenza like illness [Unknown]
  - Pain [Unknown]
  - Decreased appetite [Unknown]

NARRATIVE: CASE EVENT DATE: 20151112
